FAERS Safety Report 4398947-8 (Version None)
Quarter: 2004Q3

REPORT INFORMATION
  Report Type: 
  Country: None (occurrence: None)
  Receive Date: 20040712
  Receipt Date: 20040622
  Transmission Date: 20050211
  Serious: Yes (Hospitalization)
  Sender: FDA-Public Use
  Company Number: USA040670772

PATIENT
  Age: 80 Year
  Sex: Female
  Weight: 65 kg

DRUGS (1)
  1. HUMULIN N [Suspect]
     Dosage: 23 U DAY
     Dates: start: 19940101

REACTIONS (3)
  - BLOOD GLUCOSE INCREASED [None]
  - EYE IRRITATION [None]
  - PELVIC FRACTURE [None]
